FAERS Safety Report 12134744 (Version 1)
Quarter: 2016Q1

REPORT INFORMATION
  Report Type: Spontaneous
  Country: CH (occurrence: CH)
  Receive Date: 20160301
  Receipt Date: 20160301
  Transmission Date: 20160526
  Serious: Yes (Hospitalization, Other)
  Sender: FDA-Public Use
  Company Number: CH-ELI_LILLY_AND_COMPANY-CH201602007222

PATIENT
  Age: 77 Year
  Sex: Male
  Weight: 62 kg

DRUGS (4)
  1. CARBOPLATINE [Concomitant]
     Active Substance: CARBOPLATIN
     Dosage: 220 MG, UNKNOWN
     Route: 040
     Dates: start: 20150911, end: 20151130
  2. ALIMTA [Suspect]
     Active Substance: PEMETREXED DISODIUM
     Indication: MESOTHELIOMA MALIGNANT
     Dosage: UNK UNK, UNKNOWN
     Route: 040
     Dates: start: 20150911, end: 20150911
  3. GEMZAR [Suspect]
     Active Substance: GEMCITABINE HYDROCHLORIDE
     Dosage: 1400 MG, CYCLICAL
     Route: 040
     Dates: start: 20150911, end: 20160104
  4. GEMZAR [Suspect]
     Active Substance: GEMCITABINE HYDROCHLORIDE
     Indication: MESOTHELIOMA MALIGNANT
     Dosage: 1400 MG, CYCLICAL
     Route: 042
     Dates: start: 20151228, end: 20151228

REACTIONS (12)
  - Computerised tomogram thorax abnormal [Not Recovered/Not Resolved]
  - Asthenia [Unknown]
  - Pneumonia moraxella [Recovered/Resolved]
  - Productive cough [Recovered/Resolved]
  - Disease progression [Unknown]
  - Interstitial lung disease [Not Recovered/Not Resolved]
  - Dyspnoea [Recovered/Resolved]
  - Off label use [Unknown]
  - Pyrexia [Recovered/Resolved]
  - Malignant neoplasm progression [Unknown]
  - Rash [Unknown]
  - Eosinophilia [Unknown]

NARRATIVE: CASE EVENT DATE: 20160117
